FAERS Safety Report 13166857 (Version 4)
Quarter: 2017Q2

REPORT INFORMATION
  Report Type: Report from Study
  Country: JP (occurrence: JP)
  Receive Date: 20170131
  Receipt Date: 20170405
  Transmission Date: 20170830
  Serious: Yes (Life-Threatening, Other)
  Sender: FDA-Public Use
  Company Number: JP-UCBSA-2017003228

PATIENT
  Age: 71 Year
  Sex: Female
  Weight: 45 kg

DRUGS (10)
  1. PRIMPERAN [Concomitant]
     Active Substance: METOCLOPRAMIDE HYDROCHLORIDE
     Indication: PRODUCT USED FOR UNKNOWN INDICATION
     Dosage: 10 MG, ONCE DAILY (QD)
     Route: 042
     Dates: start: 20161226, end: 20161228
  2. CEFAZOLIN SODIUM. [Concomitant]
     Active Substance: CEFAZOLIN SODIUM
     Indication: PROPHYLAXIS OF NAUSEA AND VOMITING
     Dosage: 1 G, 2X/DAY (BID)
     Route: 042
     Dates: start: 20161228, end: 20170101
  3. E KEPPRA [Suspect]
     Active Substance: LEVETIRACETAM
     Indication: TONIC CONVULSION
     Dosage: 500 MG, 2X/DAY (BID)
     Route: 048
     Dates: start: 20161228
  4. HISICEOL [Concomitant]
     Dosage: 200 ML, 2X/DAY (BID)
     Route: 042
     Dates: start: 20161227, end: 20170105
  5. LEVETIRACETAM. [Suspect]
     Active Substance: LEVETIRACETAM
     Indication: TONIC CONVULSION
     Dosage: 500 MG, ONCE DAILY (QD)
     Route: 041
     Dates: start: 20161226, end: 20161226
  6. LEVETIRACETAM. [Suspect]
     Active Substance: LEVETIRACETAM
     Dosage: 500 MG, 2X/DAY (BID)
     Route: 041
     Dates: start: 20161227, end: 20161227
  7. HISICEOL [Concomitant]
     Indication: PRODUCT USED FOR UNKNOWN INDICATION
     Dosage: 200 ML, ONCE DAILY (QD)
     Route: 042
     Dates: start: 20161226, end: 20161226
  8. ADONA [Concomitant]
     Active Substance: CARBAZOCHROME SODIUM SULFONATE
     Indication: PRODUCT USED FOR UNKNOWN INDICATION
     Route: 042
     Dates: start: 20161226, end: 20161228
  9. TRANEXAMIC ACID. [Concomitant]
     Active Substance: TRANEXAMIC ACID
     Indication: PRODUCT USED FOR UNKNOWN INDICATION
     Route: 042
     Dates: start: 20161226, end: 20161228
  10. LEVETIRACETAM. [Suspect]
     Active Substance: LEVETIRACETAM
     Dosage: 500 MG, ONCE DAILY (QD)
     Route: 041
     Dates: start: 20161228, end: 20161228

REACTIONS (5)
  - Anaemia [Recovered/Resolved]
  - White blood cell count increased [Recovering/Resolving]
  - Hypoproteinaemia [Recovered/Resolved]
  - Off label use [Unknown]
  - Brain oedema [Recovered/Resolved]

NARRATIVE: CASE EVENT DATE: 20161226
